FAERS Safety Report 18260830 (Version 1)
Quarter: 2020Q3

REPORT INFORMATION
  Report Type: Report from Study
  Country: US (occurrence: US)
  Receive Date: 20200914
  Receipt Date: 20200914
  Transmission Date: 20201103
  Serious: Yes (Hospitalization, Other)
  Sender: FDA-Public Use
  Company Number: US-BIOGEN-2020BI00920407

PATIENT
  Age: 38 Year
  Sex: Female

DRUGS (1)
  1. TECFIDERA [Suspect]
     Active Substance: DIMETHYL FUMARATE
     Indication: MULTIPLE SCLEROSIS
     Route: 048
     Dates: start: 20180510

REACTIONS (10)
  - Depression [Unknown]
  - Hypophagia [Unknown]
  - Weight decreased [Unknown]
  - Sluggishness [Unknown]
  - Tremor [Unknown]
  - Multiple sclerosis relapse [Unknown]
  - Fear [Unknown]
  - Mobility decreased [Unknown]
  - Diabetes mellitus [Unknown]
  - Asthenia [Unknown]

NARRATIVE: CASE EVENT DATE: 202007
